FAERS Safety Report 9482910 (Version 2)
Quarter: 2013Q3

REPORT INFORMATION
  Report Type: Spontaneous
  Country: US (occurrence: US)
  Receive Date: 20130828
  Receipt Date: 20130828
  Transmission Date: 20140515
  Serious: Yes (Hospitalization)
  Sender: FDA-Public Use
  Company Number: US-AMGEN-KDL237169

PATIENT
  Age: 52 Year
  Sex: Male

DRUGS (2)
  1. ENBREL [Suspect]
     Indication: PSORIATIC ARTHROPATHY
     Dosage: 50 MG, QWK
     Route: 058
     Dates: start: 20070503, end: 20070813
  2. ENBREL [Suspect]
     Indication: PSORIASIS

REACTIONS (8)
  - Myocardial infarction [Unknown]
  - Abdominal pain [Unknown]
  - Abdominal distension [Unknown]
  - Back pain [Unknown]
  - Cyanosis [Unknown]
  - Vomiting [Unknown]
  - Psoriasis [Not Recovered/Not Resolved]
  - Liver function test abnormal [Unknown]
